FAERS Safety Report 11297750 (Version 1)
Quarter: 2015Q3

REPORT INFORMATION
  Report Type: Spontaneous
  Country: US (occurrence: US)
  Receive Date: 20150722
  Receipt Date: 20150722
  Transmission Date: 20151125
  Serious: No
  Sender: FDA-Public Use
  Company Number: US-ELI_LILLY_AND_COMPANY-US200909003613

PATIENT
  Sex: Male

DRUGS (7)
  1. ASPIRIN. [Concomitant]
     Active Substance: ASPIRIN
  2. SYNTHROID [Concomitant]
     Active Substance: LEVOTHYROXINE SODIUM
  3. VYTORIN [Concomitant]
     Active Substance: EZETIMIBE\SIMVASTATIN
  4. HUMALOG [Concomitant]
     Active Substance: INSULIN LISPRO
     Dates: start: 1995
  5. ADDERALL [Concomitant]
     Active Substance: AMPHETAMINE ASPARTATE\AMPHETAMINE SULFATE\DEXTROAMPHETAMINE SACCHARATE\DEXTROAMPHETAMINE SULFATE
  6. ALTACE [Concomitant]
     Active Substance: RAMIPRIL
  7. HUMATROPE [Suspect]
     Active Substance: SOMATROPIN
     Indication: GROWTH HORMONE DEFICIENCY
     Dosage: UNK, UNK
     Dates: start: 200601

REACTIONS (1)
  - Visual acuity reduced [Not Recovered/Not Resolved]
